FAERS Safety Report 20312425 (Version 1)
Quarter: 2022Q1

REPORT INFORMATION
  Report Type: Spontaneous
  Country: US (occurrence: None)
  Receive Date: 20220109
  Receipt Date: 20220109
  Transmission Date: 20220423
  Serious: No
  Sender: FDA-Public Use
  Company Number: None

PATIENT
  Age: 47 Year
  Sex: Female
  Weight: 146.25 kg

DRUGS (4)
  1. SOTROVIMAB [Suspect]
     Active Substance: SOTROVIMAB
     Indication: SARS-CoV-2 test positive
     Dosage: OTHER QUANTITY : 1 IV BAG;?
     Dates: start: 20220101, end: 20220101
  2. VICKS DAYQUIL [Concomitant]
     Active Substance: DEXTROMETHORPHAN HYDROBROMIDE\GUAIFENESIN
  3. ADVIL [Concomitant]
     Active Substance: IBUPROFEN
  4. DUPIXENT [Concomitant]
     Active Substance: DUPILUMAB

REACTIONS (7)
  - Condition aggravated [None]
  - Pyrexia [None]
  - Chills [None]
  - Tremor [None]
  - Blood pressure increased [None]
  - Asthenia [None]
  - Dysstasia [None]

NARRATIVE: CASE EVENT DATE: 20220101
